FAERS Safety Report 25689637 (Version 1)
Quarter: 2025Q3

REPORT INFORMATION
  Report Type: Spontaneous
  Country: US (occurrence: US)
  Receive Date: 20250818
  Receipt Date: 20250818
  Transmission Date: 20251021
  Serious: No
  Sender: ELI LILLY AND COMPANY
  Company Number: US-ELI_LILLY_AND_COMPANY-US202508011611

PATIENT
  Age: 78 Year

DRUGS (8)
  1. MOUNJARO [Suspect]
     Active Substance: TIRZEPATIDE
     Indication: Blood glucose abnormal
     Dosage: 5 MG, WEEKLY (1/W)
     Route: 058
     Dates: start: 20250810
  2. MOUNJARO [Suspect]
     Active Substance: TIRZEPATIDE
     Indication: Blood glucose abnormal
     Dosage: 5 MG, WEEKLY (1/W)
     Route: 058
     Dates: start: 20250810
  3. MOUNJARO [Suspect]
     Active Substance: TIRZEPATIDE
     Indication: Blood glucose abnormal
     Dosage: 5 MG, WEEKLY (1/W)
     Route: 058
     Dates: start: 20250810
  4. MOUNJARO [Suspect]
     Active Substance: TIRZEPATIDE
     Indication: Blood glucose abnormal
     Dosage: 5 MG, WEEKLY (1/W)
     Route: 058
     Dates: start: 20250810
  5. MOUNJARO [Suspect]
     Active Substance: TIRZEPATIDE
     Indication: Weight control
  6. MOUNJARO [Suspect]
     Active Substance: TIRZEPATIDE
     Indication: Weight control
  7. MOUNJARO [Suspect]
     Active Substance: TIRZEPATIDE
     Indication: Weight control
  8. MOUNJARO [Suspect]
     Active Substance: TIRZEPATIDE
     Indication: Weight control

REACTIONS (5)
  - Carpal tunnel syndrome [Not Recovered/Not Resolved]
  - Neck mass [Unknown]
  - Bone pain [Not Recovered/Not Resolved]
  - Blood glucose decreased [Recovering/Resolving]
  - Nausea [Unknown]

NARRATIVE: CASE EVENT DATE: 20250810
